FAERS Safety Report 9725378 (Version 1)
Quarter: 2013Q4

REPORT INFORMATION
  Report Type: Spontaneous
  Country: US (occurrence: None)
  Receive Date: 20131129
  Receipt Date: 20131129
  Transmission Date: 20140711
  Serious: Yes (Other)
  Sender: FDA-Public Use
  Company Number: JPI-P-031574

PATIENT
  Age: 59 Year
  Sex: Female

DRUGS (20)
  1. XYREM (SODIUM OXYBATE) ORAL SOLUTION, 500MG/ML [Suspect]
     Indication: NARCOLEPSY
     Dosage: 2.25 G, BID, ORAL
     Route: 048
     Dates: start: 200909
  2. ADDERALI (AMFETAMINE ASPARTATE, AMFETAMINE SULFATE, DEXAMFETAMINE SACCHARATE, DEXAMFETAMINE SULFATE)? [Concomitant]
  3. ASPIRIN (ACETYLSALICYLIC ACID) [Concomitant]
  4. ARTHOTEC AKUT (DICLOFENAC SODIUM, MISOPROSTOL) [Concomitant]
  5. FENOFIBRATE (FENOFIBRATE) (FENOFIBRATE) [Concomitant]
  6. POTASSIUM CHLORATE (POTASSIUM CHLORATE) [Concomitant]
  7. ATORVASTATIN (ATORVASTATIN CALCIUM) [Concomitant]
  8. LEVOTHYROXINE (LEVOTHYROXINE) [Concomitant]
  9. MONTELUKAST (MONTELUKAST SODIUM) [Concomitant]
  10. AMLODIPINE (AMLODIPINE BESILATE) [Concomitant]
  11. LOSARTAN (LOSARTAN POTASSIUM) [Concomitant]
  12. LANSOPRAZOLE (LANSOPRAZOLE) [Concomitant]
  13. AMPHETAMINE (AMPHETAMINE) [Concomitant]
  14. FISH OIL (FISH OIL) [Concomitant]
  15. CITRACAL MAXIMUM (CALCIUM CITRATE, COLECALCIFEROL) [Concomitant]
  16. VITAMIN D3 (COLECALCIFEROL) [Concomitant]
  17. VITAMIN C [Concomitant]
  18. CENTRUM SILVER [Concomitant]
  19. PROBIOTIC (BIFIDOBACTERIUM LACTIS) [Concomitant]
  20. VITAMIN B12 (CYANOCOBALAMIN) [Concomitant]

REACTIONS (8)
  - Lyme disease [None]
  - Rotator cuff syndrome [None]
  - Musculoskeletal discomfort [None]
  - Condition aggravated [None]
  - Weight decreased [None]
  - Bone pain [None]
  - Rotator cuff syndrome [None]
  - Pyrexia [None]
